FAERS Safety Report 8590035-X (Version None)
Quarter: 2012Q3

REPORT INFORMATION
  Report Type: 
  Country: None (occurrence: None)
  Receive Date: 20120813
  Receipt Date: 20120803
  Transmission Date: 20120928
  Serious: Yes (Other)
  Sender: FDA-Public Use
  Company Number: US-ASTRAZENECA-2011SE58402

PATIENT
  Age: 60 Year
  Sex: Female
  Weight: 124.7 kg

DRUGS (17)
  1. METFORMIN HYDROCHLORIDE [Concomitant]
     Indication: DIABETES MELLITUS
  2. SEROQUEL [Suspect]
     Indication: SLEEP DISORDER
     Route: 048
     Dates: start: 20020101
  3. SEROQUEL [Suspect]
     Indication: BIPOLAR DISORDER
     Route: 048
     Dates: start: 20020101
  4. MICRO-K [Concomitant]
  5. MULTI-VITAMINS [Concomitant]
  6. GARLIC [Concomitant]
  7. CINNAMON [Concomitant]
  8. LASIX [Concomitant]
  9. KLOR CAN-POTASSIUM [Concomitant]
  10. NEXIUM [Suspect]
     Indication: HIATUS HERNIA
     Route: 048
  11. LISINOPRIL [Suspect]
     Indication: BIPOLAR DISORDER
     Route: 048
  12. FENOFIBRATE [Concomitant]
  13. FISH OIL [Concomitant]
  14. SEROQUEL [Suspect]
     Indication: ANXIETY
     Route: 048
     Dates: start: 20020101
  15. LIPITOR [Concomitant]
     Indication: BLOOD CHOLESTEROL ABNORMAL
  16. NEXIUM [Suspect]
     Indication: GASTROOESOPHAGEAL REFLUX DISEASE
     Route: 048
  17. SYNTHROID [Concomitant]

REACTIONS (6)
  - LIGAMENT RUPTURE [None]
  - LIMB INJURY [None]
  - THYROID FUNCTION TEST ABNORMAL [None]
  - OFF LABEL USE [None]
  - PAIN IN EXTREMITY [None]
  - FALL [None]
